FAERS Safety Report 10003613 (Version 2)
Quarter: 2014Q1

REPORT INFORMATION
  Report Type: Spontaneous
  Country: US (occurrence: US)
  Receive Date: 20140312
  Receipt Date: 20140312
  Transmission Date: 20141002
  Serious: Yes (Other)
  Sender: FDA-Public Use
  Company Number: US-ABBVIE-13P-163-1128793-00

PATIENT
  Sex: Male
  Weight: 90.8 kg

DRUGS (9)
  1. DEPAKOTE [Suspect]
     Indication: CONVULSION
     Dates: start: 20100312
  2. DEPAKOTE [Suspect]
     Indication: NERVE INJURY
  3. NEURONTIN [Suspect]
     Indication: CONVULSION
     Dates: start: 20100312, end: 2012
  4. NEURONTIN [Suspect]
     Indication: NERVE INJURY
  5. GABAPENTIN [Suspect]
     Indication: CONVULSION
     Dates: start: 2012, end: 2012
  6. GABAPENTIN [Suspect]
     Indication: NERVE INJURY
  7. ABILIFY [Suspect]
     Indication: PRODUCT USED FOR UNKNOWN INDICATION
  8. RISPERDAL [Suspect]
     Indication: PRODUCT USED FOR UNKNOWN INDICATION
  9. PERAZINE [Suspect]
     Indication: PRODUCT USED FOR UNKNOWN INDICATION

REACTIONS (3)
  - Grand mal convulsion [Unknown]
  - Malaise [Unknown]
  - Abdominal pain upper [Unknown]
